FAERS Safety Report 8621810-0 (Version None)
Quarter: 2012Q3

REPORT INFORMATION
  Report Type: 
  Country: None (occurrence: None)
  Receive Date: 20120821
  Receipt Date: 20120821
  Transmission Date: 20120928
  Serious: Yes (Other)
  Sender: FDA-Public Use
  Company Number: None

PATIENT
  Sex: Female
  Weight: 56.6996 kg

DRUGS (1)
  1. ACTONEL [Suspect]
     Indication: OSTEOPOROSIS
     Dosage: ONE TABLET MONTHLY PO
     Route: 048
     Dates: start: 20120808, end: 20120808

REACTIONS (3)
  - INFLUENZA LIKE ILLNESS [None]
  - HEADACHE [None]
  - CHEST DISCOMFORT [None]
